FAERS Safety Report 10596924 (Version 1)
Quarter: 2014Q4

REPORT INFORMATION
  Report Type: Spontaneous
  Country: CN (occurrence: CN)
  Receive Date: 20141120
  Receipt Date: 20141120
  Transmission Date: 20150529
  Serious: Yes (Other)
  Sender: FDA-Public Use
  Company Number: CN-B.I. PHARMACEUTICALS,INC./RIDGEFIELD-2014-BI-55800YA

PATIENT
  Age: 38 Year
  Sex: Female

DRUGS (2)
  1. HARNAL [Suspect]
     Active Substance: TAMSULOSIN HYDROCHLORIDE
     Indication: CALCULUS URINARY
     Dosage: FORMULATION: MODIFIED-RELEASE CAPSULE, HARD
     Route: 048
  2. HERBAL EXTRACT NOS [Concomitant]
     Active Substance: HERBALS
     Indication: PRODUCT USED FOR UNKNOWN INDICATION
     Dosage: FORMULATION: GRANULES
     Route: 065

REACTIONS (2)
  - Off label use [Recovered/Resolved]
  - Cataract [Unknown]
